FAERS Safety Report 5713613-1 (Version None)
Quarter: 2008Q2

REPORT INFORMATION
  Report Type: 
  Country: None (occurrence: None)
  Receive Date: 20080418
  Receipt Date: 20080407
  Transmission Date: 20081010
  Serious: Yes (Hospitalization)
  Sender: FDA-Public Use
  Company Number: 2008-02300

PATIENT
  Age: 55 Year
  Sex: Female

DRUGS (3)
  1. PREDNISONE TAB [Suspect]
     Indication: CROHN'S DISEASE
     Dosage: ORAL
     Route: 048
  2. IUD NOS (INTRAUTERINE CONTRACEPTIVE DEVICE) [Suspect]
     Indication: DRUG USE FOR UNKNOWN INDICATION
     Dosage: VAGINAL
     Route: 067
  3. AZATHIOPRINE [Suspect]
     Indication: CROHN'S DISEASE
     Dosage: ORAL
     Route: 048

REACTIONS (4)
  - ACTINOMYCOSIS [None]
  - IMMUNOSUPPRESSION [None]
  - IUCD COMPLICATION [None]
  - UTERINE RUPTURE [None]
